FAERS Safety Report 4375718-X (Version None)
Quarter: 2004Q2

REPORT INFORMATION
  Report Type: 
  Country: None (occurrence: None)
  Receive Date: 20040608
  Receipt Date: 20030211
  Transmission Date: 20050107
  Serious: Yes (Other)
  Sender: FDA-Public Use
  Company Number: 200310498BCC

PATIENT
  Age: 92 Year
  Sex: Female

DRUGS (1)
  1. ALEVE [Suspect]
     Dosage: 220 MG, QD, ORAL
     Route: 048
     Dates: start: 20020211

REACTIONS (2)
  - RENAL DISORDER [None]
  - ULCER HAEMORRHAGE [None]
